FAERS Safety Report 6822901-7 (Version None)
Quarter: 2010Q3

REPORT INFORMATION
  Report Type: 
  Country: None (occurrence: None)
  Receive Date: 20100708
  Receipt Date: 20100630
  Transmission Date: 20110219
  Serious: Yes (Hospitalization)
  Sender: FDA-Public Use
  Company Number: GXKR2010PL06643

PATIENT
  Age: 4 Year
  Sex: Female

DRUGS (5)
  1. METHOTREXATE [Suspect]
     Indication: ACUTE LYMPHOCYTIC LEUKAEMIA
     Dosage: 12 MG ON DAY 1
     Route: 037
  2. PREDNISONE (NGX) [Suspect]
     Indication: ACUTE LYMPHOCYTIC LEUKAEMIA
     Dosage: 60 MG/M2, ON DAY 1
     Route: 065
  3. SODIUM CHLORIDE [Concomitant]
     Indication: TUMOUR LYSIS SYNDROME
  4. SODIUM BICARBONATE [Concomitant]
     Indication: TUMOUR LYSIS SYNDROME
     Dosage: 3 1/M2/D
  5. DEXTROSE [Concomitant]
     Indication: TUMOUR LYSIS SYNDROME
     Dosage: UNK

REACTIONS (10)
  - AGITATION [None]
  - ENDOTRACHEAL INTUBATION [None]
  - GRAND MAL CONVULSION [None]
  - HEADACHE [None]
  - MECHANICAL VENTILATION [None]
  - RENAL IMPAIRMENT [None]
  - RESPIRATORY FAILURE [None]
  - RESTLESSNESS [None]
  - REVERSIBLE POSTERIOR LEUKOENCEPHALOPATHY SYNDROME [None]
  - VISUAL IMPAIRMENT [None]
